FAERS Safety Report 17413650 (Version 1)
Quarter: 2020Q1

REPORT INFORMATION
  Report Type: Spontaneous
  Country: ES (occurrence: ES)
  Receive Date: 20200213
  Receipt Date: 20200213
  Transmission Date: 20200409
  Serious: Yes (Hospitalization)
  Sender: FDA-Public Use
  Company Number: NVSC2020ES037281

PATIENT
  Age: 57 Year
  Sex: Male
  Weight: 55 kg

DRUGS (17)
  1. ZOMETA [Suspect]
     Active Substance: ZOLEDRONIC ACID
     Dosage: UNK
     Route: 065
  2. PEMETREXED DISODIUM [Suspect]
     Active Substance: PEMETREXED DISODIUM
     Dosage: UNK
     Route: 065
  3. OMEPRAZOLE. [Concomitant]
     Active Substance: OMEPRAZOLE
     Indication: GASTRIC DISORDER
     Dosage: 20 MG, QD
     Route: 048
     Dates: start: 201909
  4. PEMBROLIZUMAB. [Suspect]
     Active Substance: PEMBROLIZUMAB
     Indication: PRODUCT USED FOR UNKNOWN INDICATION
     Dosage: 200 MG, Q3W (FIRST CYCLE)
     Route: 042
     Dates: start: 20190925, end: 20190925
  5. ZOMETA [Suspect]
     Active Substance: ZOLEDRONIC ACID
     Indication: LUNG ADENOCARCINOMA STAGE IV
     Dosage: UNK
     Route: 065
     Dates: start: 20190925
  6. PEMETREXED DISODIUM [Suspect]
     Active Substance: PEMETREXED DISODIUM
     Indication: LUNG ADENOCARCINOMA STAGE IV
     Dosage: UNK
     Route: 065
     Dates: start: 20190925
  7. PLATINUM [Suspect]
     Active Substance: PLATINUM
     Indication: LUNG ADENOCARCINOMA STAGE IV
     Dosage: UNK
     Route: 065
     Dates: start: 20190925
  8. ZOMETA [Suspect]
     Active Substance: ZOLEDRONIC ACID
     Dosage: UNK
     Route: 065
     Dates: start: 20191112
  9. IDEOS [Concomitant]
     Active Substance: CALCIUM CARBONATE\CHOLECALCIFEROL
     Indication: PREMEDICATION
     Dosage: 1 OT, QD (500 MG/400 IU/ DAILY)
     Route: 048
     Dates: start: 201909
  10. PEMETREXED DISODIUM [Suspect]
     Active Substance: PEMETREXED DISODIUM
     Dosage: UNK
     Route: 065
     Dates: start: 20191112
  11. PLATINUM [Suspect]
     Active Substance: PLATINUM
     Dosage: UNK
     Route: 065
  12. FORTECORTIN [Concomitant]
     Active Substance: DEXAMETHASONE
     Indication: PREMEDICATION
     Dosage: 8 MG ( 3 DAYS EVERY 21 DAYS)
     Route: 048
     Dates: start: 20190924
  13. ACFOL [Concomitant]
     Active Substance: FOLIC ACID
     Indication: PREMEDICATION
     Dosage: 5 MG, QD
     Route: 048
     Dates: start: 201909
  14. PEMBROLIZUMAB. [Suspect]
     Active Substance: PEMBROLIZUMAB
     Dosage: UNK
     Route: 065
     Dates: start: 20191023
  15. PLATINUM [Suspect]
     Active Substance: PLATINUM
     Dosage: UNK
     Route: 065
     Dates: start: 20191112
  16. PARACETAMOL [Concomitant]
     Active Substance: ACETAMINOPHEN
     Indication: BACK PAIN
     Dosage: 1 G, Q12H
     Route: 048
     Dates: start: 201908
  17. LORAZEPAM. [Concomitant]
     Active Substance: LORAZEPAM
     Indication: INSOMNIA
     Dosage: 2 MG, QD
     Route: 048
     Dates: start: 201909

REACTIONS (4)
  - Inappropriate schedule of product administration [Unknown]
  - Skin toxicity [Recovering/Resolving]
  - Immune-mediated adverse reaction [Recovering/Resolving]
  - Platelet count decreased [Recovered/Resolved]

NARRATIVE: CASE EVENT DATE: 20191002
